FAERS Safety Report 6362013-2 (Version None)
Quarter: 2009Q3

REPORT INFORMATION
  Report Type: 
  Country: None (occurrence: None)
  Receive Date: 20090918
  Receipt Date: 20090909
  Transmission Date: 20100115
  Serious: Yes (Hospitalization)
  Sender: FDA-Public Use
  Company Number: JP-CELGENEUS-087-CCAZA-09051109

PATIENT
  Sex: Male

DRUGS (15)
  1. VIDAZA [Suspect]
     Route: 058
     Dates: start: 20090508, end: 20090513
  2. VIDAZA [Suspect]
     Route: 058
     Dates: start: 20090713, end: 20090715
  3. CEFDINIR [Concomitant]
     Indication: RASH
     Route: 048
     Dates: start: 20090513
  4. VORICONAZOLE [Concomitant]
     Indication: PNEUMONIA
     Route: 051
     Dates: start: 20090518, end: 20090521
  5. VORICONAZOLE [Concomitant]
     Route: 065
     Dates: start: 20090609, end: 20090611
  6. TOBRAMYCIN [Concomitant]
     Indication: DRUG USE FOR UNKNOWN INDICATION
     Route: 065
     Dates: start: 20090609, end: 20090611
  7. TOBRAMYCIN [Concomitant]
     Indication: PERITONITIS
  8. VANCOMYCIN [Concomitant]
     Indication: DRUG USE FOR UNKNOWN INDICATION
     Route: 065
     Dates: start: 20090611
  9. VANCOMYCIN [Concomitant]
     Indication: PERITONITIS
  10. CIPROFLAXACIN [Concomitant]
     Indication: DRUG USE FOR UNKNOWN INDICATION
     Route: 065
     Dates: start: 20090101
  11. CIPROFLAXACIN [Concomitant]
     Indication: PERITONITIS
  12. ANTIMICROBIAL [Concomitant]
     Indication: DRUG USE FOR UNKNOWN INDICATION
     Route: 051
     Dates: start: 20090715
  13. ANTIMICROBIAL [Concomitant]
     Indication: PERITONITIS
  14. ANTIFUNGAL [Concomitant]
     Indication: DRUG USE FOR UNKNOWN INDICATION
     Route: 051
     Dates: start: 20090715
  15. ANTIFUNGAL [Concomitant]
     Indication: PERITONITIS

REACTIONS (2)
  - ENTEROCOLITIS [None]
  - PYREXIA [None]
